FAERS Safety Report 5695943-5 (Version None)
Quarter: 2008Q2

REPORT INFORMATION
  Report Type: 
  Country: None (occurrence: None)
  Receive Date: 20080407
  Receipt Date: 20080328
  Transmission Date: 20081010
  Serious: Yes (Other)
  Sender: FDA-Public Use
  Company Number: DE-ABBOTT-08P-062-0444458-00

PATIENT
  Age: 11 Year
  Sex: Female

DRUGS (1)
  1. VALPROATE SODIUM [Suspect]
     Indication: EPILEPSY
     Dosage: NOT REPORTED

REACTIONS (3)
  - CONVULSION [None]
  - DYSPNOEA [None]
  - GINGIVAL HYPERPLASIA [None]
